FAERS Safety Report 17899404 (Version 1)
Quarter: 2020Q2

REPORT INFORMATION
  Report Type: Spontaneous
  Country: US (occurrence: US)
  Receive Date: 20200615
  Receipt Date: 20200615
  Transmission Date: 20200714
  Serious: Yes (Other)
  Sender: FDA-Public Use
  Company Number: None

PATIENT
  Age: 78 Year
  Sex: Female
  Weight: 79 kg

DRUGS (14)
  1. AZITHROMYCIN 500MG IV DAILY [Concomitant]
     Dates: start: 20200610
  2. ZINC SULFATE 220MG BID [Concomitant]
     Dates: start: 20200611
  3. FENTANYL DRIP [Concomitant]
     Dates: start: 20200612
  4. ASCORBIC ACID 500MG BID [Concomitant]
     Dates: start: 20200611
  5. INSULIN LISPRO SLIDING SCALE [Concomitant]
     Dates: start: 20200611
  6. NOREPINEPHRINE DRIP [Concomitant]
     Dates: start: 20200611
  7. PROPOFOL DRIP [Concomitant]
     Active Substance: PROPOFOL
     Dates: start: 20200611
  8. REMDESIVIR. [Suspect]
     Active Substance: REMDESIVIR
     Indication: COVID-19
     Dosage: ?          OTHER FREQUENCY:ONCE;?
     Route: 041
     Dates: start: 20200611, end: 20200612
  9. CEFTRIAXONE 1G IV BID [Concomitant]
     Dates: start: 20200610
  10. ENOXAPARIN 40MG SUBCUT BID [Concomitant]
     Dates: start: 20200611, end: 20200615
  11. ASPIRIN 325MG PO DAILY [Concomitant]
     Dates: start: 20200611
  12. FAMOTIDINE 40MG PO BID [Concomitant]
     Dates: start: 20200611
  13. INSULIN GLARGINE 15 UNITS QBEDTIME [Concomitant]
     Dates: start: 20200613
  14. METHYLPREDNISOLONE 40MG IV BID [Concomitant]
     Dates: start: 20200611

REACTIONS (2)
  - Glomerular filtration rate decreased [None]
  - Therapy cessation [None]

NARRATIVE: CASE EVENT DATE: 20200612
